FAERS Safety Report 9261249 (Version 1)
Quarter: 2013Q2

REPORT INFORMATION
  Report Type: Spontaneous
  Country: US (occurrence: US)
  Receive Date: 20130429
  Receipt Date: 20130429
  Transmission Date: 20140414
  Serious: Yes (Hospitalization)
  Sender: FDA-Public Use
  Company Number: US-GLAXOSMITHKLINE-A0785094A

PATIENT
  Age: 58 Year
  Sex: Male

DRUGS (1)
  1. AVANDAMET [Suspect]
     Indication: TYPE 2 DIABETES MELLITUS
     Route: 048
     Dates: start: 20030502, end: 20080415

REACTIONS (3)
  - Cardiac failure congestive [Unknown]
  - Fluid retention [Unknown]
  - Dyspnoea [Unknown]
